FAERS Safety Report 14588407 (Version 1)
Quarter: 2018Q1

REPORT INFORMATION
  Report Type: Spontaneous
  Country: US (occurrence: US)
  Receive Date: 20180301
  Receipt Date: 20180301
  Transmission Date: 20180509
  Serious: Yes (Other)
  Sender: FDA-Public Use
  Company Number: US-JUBILANT CADISTA PHARMACEUTICALS-2017JUB00344

PATIENT
  Sex: Male

DRUGS (2)
  1. LAMOTRIGINE TABLETS 100MG [Suspect]
     Active Substance: LAMOTRIGINE
  2. LAMOTRIGINE TABLETS 200MG [Suspect]
     Active Substance: LAMOTRIGINE

REACTIONS (1)
  - Seizure [Unknown]
